FAERS Safety Report 14579246 (Version 1)
Quarter: 2018Q1

REPORT INFORMATION
  Report Type: Spontaneous
  Country: IT (occurrence: IT)
  Receive Date: 20180227
  Receipt Date: 20180227
  Transmission Date: 20180509
  Serious: Yes (Hospitalization)
  Sender: FDA-Public Use
  Company Number: IT-OTSUKA-DJ201302383

PATIENT

DRUGS (3)
  1. DELORAZEPAM [Concomitant]
     Active Substance: DELORAZEPAM
     Route: 065
  2. ABILIFY [Suspect]
     Active Substance: ARIPIPRAZOLE
     Indication: OBSESSIVE-COMPULSIVE DISORDER
     Route: 048
     Dates: start: 20130225, end: 20130311
  3. PAROXETINE HCL [Concomitant]
     Active Substance: PAROXETINE HYDROCHLORIDE
     Indication: ABNORMAL BEHAVIOUR
     Route: 065

REACTIONS (6)
  - Dystonia [Recovered/Resolved]
  - Urine output decreased [Recovered/Resolved]
  - Muscle spasticity [Recovered/Resolved]
  - Sensory disturbance [Recovered/Resolved]
  - Clonus [Recovered/Resolved]
  - Strangury [Recovered/Resolved]

NARRATIVE: CASE EVENT DATE: 20130311
